FAERS Safety Report 6818279-5 (Version None)
Quarter: 2010Q3

REPORT INFORMATION
  Report Type: 
  Country: None (occurrence: None)
  Receive Date: 20100706
  Receipt Date: 20071015
  Transmission Date: 20110219
  Serious: Yes (Other)
  Sender: FDA-Public Use
  Company Number: US-PFIZER INC-2007087247

PATIENT
  Sex: Female

DRUGS (3)
  1. ZITHROMAX [Suspect]
     Dates: start: 20071005, end: 20071005
  2. ZITHROMAX [Suspect]
     Dates: start: 20071006, end: 20071010
  3. ALL OTHER THERAPEUTIC PRODUCTS [Concomitant]

REACTIONS (1)
  - DEAFNESS [None]
